FAERS Safety Report 20578539 (Version 1)
Quarter: 2022Q1

REPORT INFORMATION
  Report Type: Report from Study
  Country: CN (occurrence: CN)
  Receive Date: 20220310
  Receipt Date: 20220310
  Transmission Date: 20220423
  Serious: Yes (Hospitalization)
  Sender: FDA-Public Use
  Company Number: CN-AMGEN-CHNNI2022040463

PATIENT
  Sex: Female

DRUGS (1)
  1. AMG-510 [Suspect]
     Active Substance: AMG-510
     Indication: Lung neoplasm malignant
     Dosage: 480 MILLIGRAM, QD
     Route: 065

REACTIONS (2)
  - Hypertension [Unknown]
  - Transaminases increased [Unknown]
